FAERS Safety Report 5192749-0 (Version None)
Quarter: 2006Q4

REPORT INFORMATION
  Report Type: 
  Country: None (occurrence: None)
  Receive Date: 20061220
  Receipt Date: 20061127
  Transmission Date: 20070319
  Serious: Yes (Death)
  Sender: FDA-Public Use
  Company Number: 2006P1000552

PATIENT
  Age: 54 Year

DRUGS (2)
  1. BUSULFAN (BUSULFAN) [Suspect]
     Indication: STEM CELL TRANSPLANT
     Dosage: 3.2 MG/KG;
     Dates: start: 20061016, end: 20061017
  2. CYCLOSPORINE [Suspect]
     Indication: STEM CELL TRANSPLANT
     Dates: start: 20061020

REACTIONS (5)
  - ABDOMINAL PAIN UPPER [None]
  - LIVER FUNCTION TEST ABNORMAL [None]
  - SUDDEN DEATH [None]
  - VENOOCCLUSIVE LIVER DISEASE [None]
  - WEIGHT INCREASED [None]
